FAERS Safety Report 5800055-3 (Version None)
Quarter: 2008Q3

REPORT INFORMATION
  Report Type: 
  Country: None (occurrence: None)
  Receive Date: 20080703
  Receipt Date: 20080624
  Transmission Date: 20090109
  Serious: Yes (Other)
  Sender: FDA-Public Use
  Company Number: US-WYE-H04699008

PATIENT
  Sex: Female
  Weight: 56.75 kg

DRUGS (4)
  1. PRISTIQ [Suspect]
     Indication: BIPOLAR I DISORDER
     Dosage: 250 -300 MG (OVERDOSE AMOUNT)
     Route: 048
     Dates: start: 20080601
  2. KLONOPIN [Concomitant]
     Dosage: UNKNOWN
  3. SEROQUEL [Concomitant]
     Dosage: UNKNOWN
  4. TEGRETOL [Concomitant]
     Dosage: UNKNOWN

REACTIONS (9)
  - ANGER [None]
  - ANXIETY [None]
  - CONVERSION DISORDER [None]
  - CRYING [None]
  - DEPRESSION [None]
  - DRUG INEFFECTIVE [None]
  - HOSTILITY [None]
  - INTENTIONAL OVERDOSE [None]
  - MANIA [None]
